FAERS Safety Report 18720156 (Version 3)
Quarter: 2021Q1

REPORT INFORMATION
  Report Type: Spontaneous
  Country: DE (occurrence: DE)
  Receive Date: 20210108
  Receipt Date: 20210125
  Transmission Date: 20210419
  Serious: Yes (Other)
  Sender: FDA-Public Use
  Company Number: DE-TEVA-2020-DE-1865503

PATIENT
  Age: 44 Year
  Sex: Female

DRUGS (1)
  1. AMOXICILLIN, CLAVULANIC ACID [Suspect]
     Active Substance: AMOXICILLIN\CLAVULANIC ACID
     Indication: BURSITIS
     Dosage: 500 MG /125 MG
     Route: 048
     Dates: start: 20200804, end: 20200807

REACTIONS (6)
  - Pyrexia [Unknown]
  - C-reactive protein increased [Unknown]
  - Dermatitis bullous [Unknown]
  - Erythema [Unknown]
  - Asthenia [Unknown]
  - Rash [Unknown]

NARRATIVE: CASE EVENT DATE: 2020
